FAERS Safety Report 18528414 (Version 1)
Quarter: 2020Q4

REPORT INFORMATION
  Report Type: Report from Study
  Country: JP (occurrence: JP)
  Receive Date: 20201120
  Receipt Date: 20201120
  Transmission Date: 20210114
  Serious: Yes (Life-Threatening, Hospitalization)
  Sender: FDA-Public Use
  Company Number: JP-JNJFOC-A-CH2017-164853

PATIENT
  Age: 39 Year
  Sex: Male

DRUGS (18)
  1. ADCIRCA [Suspect]
     Active Substance: TADALAFIL
     Indication: PULMONARY ARTERIAL HYPERTENSION
     Dosage: 20 MG, QD
     Route: 048
  2. NEXIUM [Concomitant]
     Active Substance: ESOMEPRAZOLE MAGNESIUM
  3. CALONAL [Concomitant]
     Active Substance: ACETAMINOPHEN
  4. LAC-B [Concomitant]
     Active Substance: BIFIDOBACTERIUM SPP.
  5. OXYGEN. [Concomitant]
     Active Substance: OXYGEN
  6. MAINTATE [Suspect]
     Active Substance: BISOPROLOL FUMARATE
     Indication: RIGHT VENTRICULAR FAILURE
     Dosage: 0.625 MG, QD
     Route: 048
     Dates: start: 20170309, end: 20170422
  7. MAINTATE [Suspect]
     Active Substance: BISOPROLOL FUMARATE
     Route: 048
     Dates: start: 20190215
  8. LASIX [Suspect]
     Active Substance: FUROSEMIDE
     Indication: RIGHT VENTRICULAR FAILURE
     Dosage: 20 MG, QD
     Route: 048
     Dates: start: 20170312, end: 20170407
  9. SAMSCA [Concomitant]
     Active Substance: TOLVAPTAN
  10. ASPARA K [Concomitant]
     Active Substance: POTASSIUM ASPARTATE
  11. OPSUMIT [Suspect]
     Active Substance: MACITENTAN
     Indication: PULMONARY ARTERIAL HYPERTENSION
     Dosage: 10 MG, QD
     Route: 048
     Dates: start: 20170208
  12. BIOFERMIN [Concomitant]
     Active Substance: DIETARY SUPPLEMENT\PROBIOTICS
  13. MAINTATE [Suspect]
     Active Substance: BISOPROLOL FUMARATE
     Route: 048
     Dates: start: 20180319
  14. DIART [Suspect]
     Active Substance: AZOSEMIDE
     Indication: RIGHT VENTRICULAR FAILURE
     Dosage: 60 MG, QD
     Route: 048
     Dates: start: 20170331
  15. WARFARIN [Concomitant]
     Active Substance: WARFARIN
  16. FUROSEMIDE. [Concomitant]
     Active Substance: FUROSEMIDE
  17. LYRICA [Concomitant]
     Active Substance: PREGABALIN
  18. AMIODARONE [Concomitant]
     Active Substance: AMIODARONE

REACTIONS (6)
  - Mediastinitis [Recovering/Resolving]
  - Thoracotomy [Unknown]
  - Anaemia [Recovered/Resolved]
  - White blood cell count decreased [Recovered/Resolved]
  - Transfusion [Unknown]
  - Blood pressure diastolic decreased [Recovered/Resolved with Sequelae]

NARRATIVE: CASE EVENT DATE: 20170209
